FAERS Safety Report 9973484 (Version 1)
Quarter: 2014Q1

REPORT INFORMATION
  Report Type: Spontaneous
  Country: US (occurrence: US)
  Receive Date: 20140306
  Receipt Date: 20140306
  Transmission Date: 20141002
  Serious: Yes (Other)
  Sender: FDA-Public Use
  Company Number: US-PFIZER INC-2014060256

PATIENT
  Age: 64 Year
  Sex: Female
  Weight: 50.8 kg

DRUGS (2)
  1. PREMARIN [Suspect]
     Indication: ALBRIGHT^S DISEASE
     Dosage: 2.50 MG, 1X/DAY (1.25 MG X 2)
     Route: 048
     Dates: start: 1971
  2. ESTROGENS CONJUGATED [Suspect]
     Indication: ALBRIGHT^S DISEASE
     Dosage: 2.50 MG, 1X/DAY
     Route: 048

REACTIONS (8)
  - Fibrous dysplasia of bone [Unknown]
  - Oral candidiasis [Unknown]
  - Vulvovaginal candidiasis [Unknown]
  - Skin exfoliation [Unknown]
  - Pain [Unknown]
  - Blood cholesterol increased [Unknown]
  - Drug interaction [Unknown]
  - Drug ineffective for unapproved indication [Unknown]
